FAERS Safety Report 8595687 (Version 2)
Quarter: 2013Q2

REPORT INFORMATION
  Report Type: Spontaneous
  Country: US (occurrence: US)
  Receive Date: 20120604
  Receipt Date: 20130404
  Transmission Date: 20140414
  Serious: Yes (Other)
  Sender: FDA-Public Use
  Company Number: US-BAYER-2012-054872

PATIENT
  Age: 20 Year
  Sex: Female

DRUGS (1)
  1. MIRENA [Suspect]
     Dosage: 20 MCG/24HR, CONT
     Route: 015
     Dates: start: 201205, end: 201206

REACTIONS (7)
  - Device dislocation [None]
  - Vaginal haemorrhage [None]
  - Uterine spasm [Recovered/Resolved]
  - Fungal infection [None]
  - Intentional medical device removal by patient [None]
  - Post procedural haemorrhage [None]
  - Pregnancy with contraceptive device [None]
